FAERS Safety Report 7777086-X (Version None)
Quarter: 2011Q3

REPORT INFORMATION
  Report Type: 
  Country: None (occurrence: None)
  Receive Date: 20110926
  Receipt Date: 20110919
  Transmission Date: 20111222
  Serious: Yes (Other)
  Sender: FDA-Public Use
  Company Number: US-SANOFI-AVENTIS-2011SA061531

PATIENT
  Sex: Male

DRUGS (3)
  1. LANTUS [Suspect]
     Dosage: DOSE:30 UNIT(S)
     Route: 058
  2. HUMALOG [Suspect]
     Dosage: DOSE:30 UNIT(S)
     Route: 058
  3. HUMALOG [Suspect]
     Route: 058

REACTIONS (2)
  - WRONG DRUG ADMINISTERED [None]
  - LOSS OF CONSCIOUSNESS [None]
